FAERS Safety Report 10533993 (Version 1)
Quarter: 2014Q4

REPORT INFORMATION
  Report Type: Spontaneous
  Country: JP (occurrence: JP)
  Receive Date: 20141022
  Receipt Date: 20141022
  Transmission Date: 20150529
  Serious: Yes (Disabling, Other)
  Sender: FDA-Public Use
  Company Number: JP-ASTRAZENECA-2014SE79460

PATIENT
  Age: 34 Year
  Sex: Male

DRUGS (3)
  1. SEROQUEL [Suspect]
     Active Substance: QUETIAPINE FUMARATE
     Indication: SCHIZOPHRENIA
     Route: 048
     Dates: start: 201010, end: 201109
  2. SEROQUEL [Suspect]
     Active Substance: QUETIAPINE FUMARATE
     Indication: SCHIZOPHRENIA
     Route: 048
     Dates: start: 201104, end: 201109
  3. UNSPECIFIED [Suspect]
     Active Substance: UNSPECIFIED INGREDIENT
     Route: 065

REACTIONS (2)
  - Dystonia [Unknown]
  - Motor dysfunction [Unknown]
